FAERS Safety Report 8112901-1 (Version None)
Quarter: 2012Q1

REPORT INFORMATION
  Report Type: 
  Country: None (occurrence: None)
  Receive Date: 20120203
  Receipt Date: 20120123
  Transmission Date: 20120608
  Serious: Yes (Death, Hospitalization, Other)
  Sender: FDA-Public Use
  Company Number: US-ACTELION-A-NJ2011-52810

PATIENT

DRUGS (11)
  1. TRICOR [Concomitant]
  2. TRACLEER [Suspect]
     Indication: PULMONARY ARTERIAL HYPERTENSION
     Dosage: UNK
     Route: 048
     Dates: start: 20100929, end: 20111020
  3. COUMADIN [Concomitant]
  4. OXYGEN [Concomitant]
  5. OMEPRAZOLE [Concomitant]
  6. LASIX [Concomitant]
  7. ATENOLOL [Concomitant]
  8. DIGOXIN [Concomitant]
  9. LORAZEPAM [Concomitant]
  10. LISINOPRIL [Concomitant]
  11. EFFEXOR [Concomitant]

REACTIONS (8)
  - CHRONIC OBSTRUCTIVE PULMONARY DISEASE [None]
  - RESPIRATORY FAILURE [None]
  - CARDIAC FAILURE ACUTE [None]
  - DYSPNOEA [None]
  - MALIGNANT PLEURAL EFFUSION [None]
  - LUNG NEOPLASM [None]
  - PNEUMONIA [None]
  - URINARY TRACT INFECTION [None]
